FAERS Safety Report 6930684-5 (Version None)
Quarter: 2010Q3

REPORT INFORMATION
  Report Type: 
  Country: None (occurrence: None)
  Receive Date: 20100809
  Receipt Date: 20091222
  Transmission Date: 20110219
  Serious: No
  Sender: FDA-Public Use
  Company Number: US-001295

PATIENT
  Sex: Male

DRUGS (5)
  1. DEGARELIX 240 MG [Suspect]
     Indication: PROSTATE CANCER
     Dosage: (SUBCUTANEOUS)
     Route: 058
     Dates: start: 20091218, end: 20091218
  2. METOPROLOL TARTRATE [Concomitant]
  3. FLECAINIDE ACETATE [Concomitant]
  4. WARFARIN SODIUM [Concomitant]
  5. FLOXMAX [Concomitant]

REACTIONS (3)
  - INJECTION SITE ERYTHEMA [None]
  - INJECTION SITE SWELLING [None]
  - INJECTION SITE URTICARIA [None]
